FAERS Safety Report 16031386 (Version 1)
Quarter: 2019Q1

REPORT INFORMATION
  Report Type: Spontaneous
  Country: NL (occurrence: NL)
  Receive Date: 20190304
  Receipt Date: 20190304
  Transmission Date: 20190418
  Serious: Yes (Other)
  Sender: FDA-Public Use
  Company Number: NL-TEVA-2019-NL-1018911

PATIENT
  Age: 71 Year
  Sex: Male
  Weight: 72 kg

DRUGS (12)
  1. LANOXIN [Concomitant]
     Active Substance: DIGOXIN
     Dosage: 1 GRAM DAILY; 1DD1
  2. ALLOPURINOL. [Suspect]
     Active Substance: ALLOPURINOL
     Indication: GOUTY TOPHUS
     Dosage: 300 MILLIGRAM DAILY; 1 DD 300MG
     Dates: end: 20190111
  3. SPIRIVA [Concomitant]
     Active Substance: TIOTROPIUM BROMIDE MONOHYDRATE
     Dosage: 2 DOSAGE FORMS DAILY; 1 DD 2 INHALATIES
  4. ACENOCOUMAROL [Concomitant]
     Active Substance: ACENOCOUMAROL
     Dosage: ACCORDING TO DOSAGE SCHEDULE
  5. SALMETEROL /FLUTICASONPROPIONAAT [Concomitant]
     Dosage: 2DD2 INHALATIES
  6. ALLOPURINOL. [Suspect]
     Active Substance: ALLOPURINOL
     Dosage: 200 MG PER DAG
     Dates: start: 20180810
  7. ATORVASTATINE 10 MG [Concomitant]
     Active Substance: ATORVASTATIN
     Dosage: 10 MILLIGRAM DAILY; 1DD1
  8. BUMETANIDE 1 MG [Concomitant]
     Active Substance: BUMETANIDE
     Dosage: 3 MILLIGRAM DAILY; 1DD3
  9. SPIRONOLACTON 25 MG [Concomitant]
     Dosage: 25 MILLIGRAM DAILY; 1DD1
  10. NAPROXEN 250 MG [Concomitant]
     Active Substance: NAPROXEN
     Dosage: 250 MILLIGRAM DAILY; 2DD1
  11. DAGRAVIT TOTAAL 30 [Concomitant]
     Dosage: 1 DOSAGE FORMS DAILY; 1DD1
  12. PANTOPRAZOLE SODIUM. [Concomitant]
     Active Substance: PANTOPRAZOLE SODIUM
     Dosage: 40 MILLIGRAM DAILY; 1DD1

REACTIONS (3)
  - Abnormal faeces [Recovering/Resolving]
  - Haematochezia [Recovering/Resolving]
  - Abdominal pain [Recovering/Resolving]

NARRATIVE: CASE EVENT DATE: 20181205
